FAERS Safety Report 11057442 (Version 3)
Quarter: 2015Q3

REPORT INFORMATION
  Report Type: Spontaneous
  Country: US (occurrence: US)
  Receive Date: 20150422
  Receipt Date: 20150731
  Transmission Date: 20151125
  Serious: Yes (Hospitalization, Disabling, Other)
  Sender: FDA-Public Use
  Company Number: US-ELI_LILLY_AND_COMPANY-US201504005585

PATIENT
  Age: 52 Year
  Sex: Male

DRUGS (5)
  1. TESTOSTERONE CYPIONATE. [Suspect]
     Active Substance: TESTOSTERONE CYPIONATE
     Indication: BLOOD TESTOSTERONE DECREASED
     Dosage: 1 ML, EACH 2 WEEKS
     Route: 030
     Dates: start: 20120710
  2. AXIRON [Suspect]
     Active Substance: TESTOSTERONE
     Indication: BLOOD TESTOSTERONE DECREASED
     Dosage: UNK, UNKNOWN
     Route: 061
     Dates: start: 20130814, end: 2014
  3. LISINOPRIL. [Concomitant]
     Active Substance: LISINOPRIL
     Indication: HYPERTENSION
     Dosage: 10 MG, QD
     Route: 065
     Dates: start: 2014
  4. ASPIRIN                            /00002701/ [Concomitant]
     Active Substance: ASPIRIN
     Indication: CHEST PAIN
     Dosage: UNK, UNKNOWN
     Route: 065
  5. ANDROGEL [Suspect]
     Active Substance: TESTOSTERONE
     Indication: BLOOD TESTOSTERONE DECREASED
     Dosage: UNK, UNKNOWN
     Route: 065
     Dates: start: 2009, end: 2013

REACTIONS (17)
  - Polycythaemia vera [Unknown]
  - Vertebral artery dissection [Unknown]
  - Vertigo [Unknown]
  - Cerebellar infarction [Unknown]
  - Sinus arrest [Unknown]
  - Bradycardia [Recovered/Resolved]
  - Brain compression [Unknown]
  - Drug abuse [Unknown]
  - Hypercoagulation [Unknown]
  - Brain oedema [Unknown]
  - Cerebral ventricle collapse [Unknown]
  - Asthenia [Unknown]
  - Vertebral artery occlusion [Unknown]
  - Pulmonary embolism [Unknown]
  - Hydrocephalus [Unknown]
  - Balance disorder [Unknown]
  - Amnesia [Not Recovered/Not Resolved]

NARRATIVE: CASE EVENT DATE: 201404
